FAERS Safety Report 10041918 (Version 2)
Quarter: 2014Q2

REPORT INFORMATION
  Report Type: Spontaneous
  Country: FR (occurrence: FR)
  Receive Date: 20140327
  Receipt Date: 20140513
  Transmission Date: 20141212
  Serious: Yes (Other)
  Sender: FDA-Public Use
  Company Number: FR-TEVA-469665ISR

PATIENT
  Age: 32 Year
  Sex: Female
  Weight: 60 kg

DRUGS (3)
  1. IBUPROFEN TEVA 400 MG [Suspect]
     Indication: TONSILLITIS
     Route: 048
     Dates: start: 20140313, end: 20140314
  2. IBUPROFEN TEVA 400 MG [Suspect]
     Indication: MIGRAINE
  3. AMOXICILLINE [Concomitant]
     Indication: TONSILLITIS
     Route: 048
     Dates: start: 20140313, end: 20140318

REACTIONS (2)
  - Angioedema [Recovered/Resolved]
  - Swollen tongue [Recovered/Resolved]
